FAERS Safety Report 12456684 (Version 2)
Quarter: 2016Q4

REPORT INFORMATION
  Report Type: Spontaneous
  Country: US (occurrence: US)
  Receive Date: 20160610
  Receipt Date: 20161020
  Transmission Date: 20170207
  Serious: No
  Sender: FDA-Public Use
  Company Number: US-GLAXOSMITHKLINE-US2016080052

PATIENT
  Age: 45 Year
  Sex: Female

DRUGS (1)
  1. ABREVA [Suspect]
     Active Substance: DOCOSANOL
     Indication: ORAL HERPES
     Dosage: UNK
     Dates: start: 20160530

REACTIONS (7)
  - Condition aggravated [Not Recovered/Not Resolved]
  - Incorrect drug administration duration [Unknown]
  - Oral herpes [Not Recovered/Not Resolved]
  - Drug ineffective [Not Recovered/Not Resolved]
  - Application site scab [Not Recovered/Not Resolved]
  - Application site urticaria [Not Recovered/Not Resolved]
  - Lip swelling [Not Recovered/Not Resolved]

NARRATIVE: CASE EVENT DATE: 20160530
